FAERS Safety Report 5313246-5 (Version None)
Quarter: 2007Q2

REPORT INFORMATION
  Report Type: 
  Country: None (occurrence: None)
  Receive Date: 20070501
  Receipt Date: 20070423
  Transmission Date: 20071010
  Serious: Yes (Hospitalization, Other)
  Sender: FDA-Public Use
  Company Number: US-JNJFOC-20070405299

PATIENT
  Sex: Female

DRUGS (9)
  1. FENTANYL TRANSDERMAL SYSTEM [Suspect]
     Indication: PAIN
     Dosage: 100UG/HR
     Route: 062
  2. VIOXX [Suspect]
     Indication: PAIN
     Route: 048
  3. LIPITOR [Suspect]
     Indication: BLOOD CHOLESTEROL INCREASED
     Route: 048
  4. CLONIDINE [Concomitant]
     Indication: PAIN
     Route: 062
  5. EFFEXOR [Concomitant]
     Indication: PAIN
     Route: 048
  6. PREMARIN [Concomitant]
     Indication: HORMONE REPLACEMENT THERAPY
     Route: 048
  7. IMMUNE GLOBULIN INTRAVENOUS (HUMAN) [Concomitant]
     Indication: PAIN
     Route: 042
  8. FOLIC ACID [Concomitant]
     Indication: ANAEMIA
     Route: 048
  9. ACTIQ [Concomitant]
     Indication: PAIN
     Route: 002

REACTIONS (7)
  - APPLICATION SITE RASH [None]
  - BLOOD CREATININE INCREASED [None]
  - CIRCULATORY COLLAPSE [None]
  - DRUG INEFFECTIVE [None]
  - GAIT DISTURBANCE [None]
  - RHABDOMYOLYSIS [None]
  - WRONG TECHNIQUE IN DRUG USAGE PROCESS [None]
